FAERS Safety Report 17071260 (Version 1)
Quarter: 2019Q4

REPORT INFORMATION
  Report Type: Spontaneous
  Country: US (occurrence: US)
  Receive Date: 20191025
  Receipt Date: 20191025
  Transmission Date: 20200122
  Serious: No
  Sender: FDA-Public Use
  Company Number: None

PATIENT
  Age: 34 Month
  Sex: Female

DRUGS (3)
  1. HYDROXYZINE TACROLIMUS [Concomitant]
  2. BOTOX [Suspect]
     Active Substance: ONABOTULINUMTOXINA
     Indication: CEREBRAL PALSY
     Dosage: ?          OTHER STRENGTH:100 U;?
     Route: 030
     Dates: start: 20190619
  3. BOTOX [Concomitant]
     Active Substance: ONABOTULINUMTOXINA

REACTIONS (2)
  - Treatment failure [None]
  - Off label use [None]

NARRATIVE: CASE EVENT DATE: 20191025
